FAERS Safety Report 6190235-2 (Version None)
Quarter: 2009Q2

REPORT INFORMATION
  Report Type: 
  Country: None (occurrence: None)
  Receive Date: 20090513
  Receipt Date: 20090513
  Transmission Date: 20091009
  Serious: Yes (Life-Threatening, Other)
  Sender: FDA-Public Use
  Company Number: None

PATIENT
  Age: 32 Year
  Sex: Female
  Weight: 45.3597 kg

DRUGS (2)
  1. SEROQUEL [Suspect]
     Indication: BIPOLAR DISORDER
     Dosage: 200 MG NIGHTLY PO
     Route: 048
     Dates: start: 20071111, end: 20090502
  2. SEROQUEL [Suspect]
     Indication: DEPRESSION
     Dosage: 200 MG NIGHTLY PO
     Route: 048
     Dates: start: 20071111, end: 20090502

REACTIONS (3)
  - DISSOCIATIVE DISORDER [None]
  - MUSCULAR WEAKNESS [None]
  - THINKING ABNORMAL [None]
